FAERS Safety Report 5603095-2 (Version None)
Quarter: 2008Q1

REPORT INFORMATION
  Report Type: 
  Country: None (occurrence: None)
  Receive Date: 20080125
  Receipt Date: 20080115
  Transmission Date: 20080703
  Serious: Yes (Other)
  Sender: FDA-Public Use
  Company Number: CH-PFIZER INC-2008004376

PATIENT
  Age: 60 Year
  Sex: Female

DRUGS (4)
  1. SORTIS [Suspect]
     Indication: HYPERCHOLESTEROLAEMIA
     Route: 048
  2. KLACID [Suspect]
     Indication: GASTRIC ULCER
     Route: 048
     Dates: start: 20071118, end: 20071127
  3. AMOXI-BASAN [Concomitant]
     Indication: GASTRIC ULCER
     Route: 048
     Dates: start: 20071118, end: 20071127
  4. NEXIUM [Concomitant]
     Route: 048

REACTIONS (3)
  - HAEMATURIA [None]
  - LIVER INJURY [None]
  - MYALGIA [None]
